FAERS Safety Report 15526697 (Version 1)
Quarter: 2018Q4

REPORT INFORMATION
  Report Type: Spontaneous
  Country: IR (occurrence: IR)
  Receive Date: 20181018
  Receipt Date: 20181018
  Transmission Date: 20190205
  Serious: Yes (Other)
  Sender: FDA-Public Use
  Company Number: IR-BAYER-2018-191466

PATIENT
  Sex: Female

DRUGS (2)
  1. ACETYLSALICYLIC ACID({=100 MG) [Suspect]
     Active Substance: ASPIRIN
     Indication: CORONARY ARTERIAL STENT INSERTION
  2. CLOPIDOGREL [Interacting]
     Active Substance: CLOPIDOGREL BISULFATE

REACTIONS (3)
  - Eye haemorrhage [None]
  - Blindness [None]
  - Labelled drug-drug interaction medication error [None]
